FAERS Safety Report 21909381 (Version 2)
Quarter: 2023Q1

REPORT INFORMATION
  Report Type: Spontaneous
  Country: IT (occurrence: None)
  Receive Date: 20230125
  Receipt Date: 20230202
  Transmission Date: 20230418
  Serious: Yes (Death)
  Sender: FDA-Public Use
  Company Number: IT-ROCHE-3267155

PATIENT
  Age: 41 Year
  Sex: Male

DRUGS (1)
  1. RISDIPLAM [Suspect]
     Active Substance: RISDIPLAM
     Indication: Spinal muscular atrophy
     Route: 048
     Dates: start: 20210914, end: 202212

REACTIONS (1)
  - Spinal muscular atrophy [Fatal]

NARRATIVE: CASE EVENT DATE: 20221227
